APPROVED DRUG PRODUCT: NERLYNX
Active Ingredient: NERATINIB MALEATE
Strength: EQ 40MG BASE
Dosage Form/Route: TABLET;ORAL
Application: N208051 | Product #001
Applicant: PUMA BIOTECHNOLOGY INC
Approved: Jul 17, 2017 | RLD: Yes | RS: Yes | Type: RX

PATENTS:
Patent 8518446 | Expires: Nov 20, 2030
Patent 10035788 | Expires: Oct 15, 2028
Patent 8790708 | Expires: Nov 5, 2030
Patent 9211291 | Expires: Mar 24, 2030
Patent 9630946 | Expires: Oct 15, 2028
Patent 8790708 | Expires: Nov 5, 2030
Patent 8790708 | Expires: Nov 5, 2030
Patent 9211291 | Expires: Mar 24, 2030
Patent 8518446 | Expires: Nov 20, 2030
Patent 8518446 | Expires: Nov 20, 2030
Patent 9139558 | Expires: Oct 15, 2028
Patent 9139558 | Expires: Oct 15, 2028
Patent 9630946 | Expires: Oct 15, 2028
Patent 9630946 | Expires: Oct 15, 2028
Patent 10035788 | Expires: Oct 15, 2028
Patent 10035788 | Expires: Oct 15, 2028
Patent 9265784 | Expires: Aug 4, 2029
Patent 8669273 | Expires: Jul 18, 2031
Patent 9139558 | Expires: Oct 15, 2028
Patent 7399865 | Expires: Dec 29, 2030